FAERS Safety Report 25153145 (Version 2)
Quarter: 2025Q2

REPORT INFORMATION
  Report Type: Spontaneous
  Country: JP (occurrence: JP)
  Receive Date: 20250403
  Receipt Date: 20250408
  Transmission Date: 20250717
  Serious: Yes (Hospitalization)
  Sender: BRISTOL MYERS SQUIBB
  Company Number: JP-BRISTOL-MYERS SQUIBB COMPANY-2025-047574

PATIENT
  Sex: Male

DRUGS (2)
  1. YERVOY [Suspect]
     Active Substance: IPILIMUMAB
     Indication: Colon cancer
     Route: 041
     Dates: start: 202502, end: 202502
  2. OPDIVO [Suspect]
     Active Substance: NIVOLUMAB
     Indication: Colon cancer
     Route: 041
     Dates: start: 202502, end: 202502

REACTIONS (1)
  - Abdominal adhesions [Recovering/Resolving]

NARRATIVE: CASE EVENT DATE: 20250201
